FAERS Safety Report 9280342 (Version 1)
Quarter: 2013Q2

REPORT INFORMATION
  Report Type: Spontaneous
  Country: IT (occurrence: IT)
  Receive Date: 20130509
  Receipt Date: 20130509
  Transmission Date: 20140414
  Serious: Yes (Hospitalization)
  Sender: FDA-Public Use
  Company Number: IT-ASTELLAS-2013US004770

PATIENT
  Age: 48 Year
  Sex: Female
  Weight: 42 kg

DRUGS (3)
  1. TARCEVA [Suspect]
     Indication: LUNG CANCER METASTATIC
     Dosage: 500 MG, UID/QD
     Route: 048
     Dates: start: 20130213, end: 20130218
  2. DEXAMETHASONE [Concomitant]
     Indication: DYSPNOEA
     Dosage: UNK
     Route: 065
     Dates: start: 20130108, end: 20130318
  3. PARACETAMOL [Concomitant]
     Indication: PRODUCT USED FOR UNKNOWN INDICATION
     Dosage: UNK
     Route: 065
     Dates: start: 20130108, end: 20130318

REACTIONS (2)
  - Overdose [Unknown]
  - Neutropenia [Recovered/Resolved]
